FAERS Safety Report 6119984-9 (Version None)
Quarter: 2009Q1

REPORT INFORMATION
  Report Type: 
  Country: None (occurrence: None)
  Receive Date: 20090316
  Receipt Date: 20090306
  Transmission Date: 20090719
  Serious: Yes (Other)
  Sender: FDA-Public Use
  Company Number: US-ELI_LILLY_AND_COMPANY-US200903002140

PATIENT
  Age: 49 Year
  Sex: Female

DRUGS (8)
  1. CYMBALTA [Suspect]
     Indication: MAJOR DEPRESSION
     Dosage: 30 MG, UNK
     Route: 048
  2. CYMBALTA [Suspect]
     Dosage: 20 MG, UNK
     Route: 048
     Dates: start: 20090224
  3. FLONASE [Concomitant]
  4. ALLEGRA [Concomitant]
  5. TYLENOL (CAPLET) [Concomitant]
  6. TYLENOL (CAPLET) [Concomitant]
  7. PRILOSEC [Concomitant]
  8. XOPENEX [Concomitant]

REACTIONS (2)
  - DEPRESSION [None]
  - LOSS OF CONSCIOUSNESS [None]
